FAERS Safety Report 7107404-7 (Version None)
Quarter: 2010Q4

REPORT INFORMATION
  Report Type: 
  Country: None (occurrence: None)
  Receive Date: 20101111
  Receipt Date: 20101111
  Transmission Date: 20110411
  Serious: Yes (Other)
  Sender: FDA-Public Use
  Company Number: None

PATIENT
  Sex: Female

DRUGS (1)
  1. OXYCODONE 30MG MALLINCKRODT PHARM [Suspect]
     Dosage: 1 TABLET UP TO 3 TIMES A DA PO
     Route: 048
     Dates: start: 20051102, end: 20101110

REACTIONS (1)
  - DYSPNOEA [None]
